FAERS Safety Report 15869638 (Version 1)
Quarter: 2019Q1

REPORT INFORMATION
  Report Type: Other
  Country: US (occurrence: US)
  Receive Date: 20190125
  Receipt Date: 20190125
  Transmission Date: 20190417
  Serious: Yes (Other)
  Sender: FDA-Public Use
  Company Number: US-EMERGENT BIOSOLUTIONS-16AV00044SP

PATIENT
  Sex: Female
  Weight: 61 kg

DRUGS (4)
  1. BIOTHRAX [Suspect]
     Active Substance: BACILLUS ANTHRACIS STRAIN V770-NP1-R ANTIGENS
     Indication: CLINICAL TRIAL PARTICIPANT
     Route: 065
     Dates: start: 20150903
  2. BIOTHRAX [Suspect]
     Active Substance: BACILLUS ANTHRACIS STRAIN V770-NP1-R ANTIGENS
     Dates: start: 20150917
  3. RAXIBACUMAB. [Suspect]
     Active Substance: RAXIBACUMAB
     Indication: PNEUMONIA ANTHRAX
  4. PRENATAL VITAMINS [Concomitant]
     Active Substance: VITAMINS
     Indication: PREGNANCY
     Dosage: UNK
     Dates: start: 20151001, end: 20151125

REACTIONS (6)
  - Stress [None]
  - Fatigue [None]
  - Abortion spontaneous [Recovered/Resolved]
  - Exposure during pregnancy [Recovered/Resolved]
  - Pregnancy [None]
  - Economic problem [None]

NARRATIVE: CASE EVENT DATE: 20151125
